FAERS Safety Report 10407709 (Version 1)
Quarter: 2014Q3

REPORT INFORMATION
  Report Type: Spontaneous
  Country: US (occurrence: US)
  Receive Date: 20140825
  Receipt Date: 20140825
  Transmission Date: 20150326
  Serious: No
  Sender: FDA-Public Use
  Company Number: US-009507513-1408USA012837

PATIENT
  Sex: Female

DRUGS (1)
  1. DR. SCHOLLS CLEAR AWAY WART REMOVER [Suspect]
     Active Substance: SALICYLIC ACID
     Indication: SKIN PAPILLOMA
     Dosage: UNK UNK, UNKNOWN
     Route: 061
     Dates: start: 20140812

REACTIONS (2)
  - Product adhesion issue [Unknown]
  - Application site discolouration [Not Recovered/Not Resolved]

NARRATIVE: CASE EVENT DATE: 201408
